FAERS Safety Report 12508722 (Version 1)
Quarter: 2016Q2

REPORT INFORMATION
  Report Type: Spontaneous
  Country: US (occurrence: US)
  Receive Date: 20160629
  Receipt Date: 20160629
  Transmission Date: 20160815
  Serious: No
  Sender: FDA-Public Use
  Company Number: US-ACTAVIS-2016-07015

PATIENT
  Sex: Male

DRUGS (1)
  1. DEXTROAMPHETAMINE-AMPHETAMINE (AELLC) [Suspect]
     Active Substance: DEXTROAMPHETAMINE
     Indication: ATTENTION DEFICIT/HYPERACTIVITY DISORDER
     Dosage: 5 MG, BID
     Route: 048

REACTIONS (1)
  - Drug ineffective [Recovered/Resolved]
